FAERS Safety Report 5361106-6 (Version None)
Quarter: 2007Q2

REPORT INFORMATION
  Report Type: 
  Country: None (occurrence: None)
  Receive Date: 20070614
  Receipt Date: 20070606
  Transmission Date: 20071010
  Serious: Yes (Hospitalization, Other)
  Sender: FDA-Public Use
  Company Number: 163-20785-07040561

PATIENT
  Age: 56 Year
  Sex: Male

DRUGS (8)
  1. THALOMID [Suspect]
     Indication: MULTIPLE MYELOMA
     Dosage: 100 MG, 1 IN 1 D, ORAL
     Route: 048
     Dates: start: 20070413, end: 20070420
  2. SENOKOT S (COLOXYL WITH SENNA) [Concomitant]
  3. COMPAZINE [Concomitant]
  4. CULTURELLE (CULTURELLE) [Concomitant]
  5. K-DUR 10 [Concomitant]
  6. NAPROSYN (NAPROXEIN) [Concomitant]
  7. PROTONIX [Concomitant]
  8. IMMUNOGLOBULIN (IMMUNOGLOBULIN) [Concomitant]

REACTIONS (2)
  - ANAEMIA HAEMOLYTIC AUTOIMMUNE [None]
  - DISEASE PROGRESSION [None]
